FAERS Safety Report 8848791 (Version 1)
Quarter: 2012Q4

REPORT INFORMATION
  Report Type: Spontaneous
  Country: US (occurrence: None)
  Receive Date: 20121017
  Receipt Date: 20121017
  Transmission Date: 20130627
  Serious: Yes (Disabling)
  Sender: FDA-Public Use
  Company Number: None

PATIENT
  Age: 52 Year
  Sex: Male
  Weight: 61.24 kg

DRUGS (1)
  1. CIPROFLOXACIN [Suspect]
     Indication: DIVERTICULITIS
     Dosage: 1 tablet, 2x day, po
     Route: 048
     Dates: start: 20120815, end: 20120824

REACTIONS (3)
  - Arthralgia [None]
  - Musculoskeletal pain [None]
  - Pain in extremity [None]
